FAERS Safety Report 6894172-7 (Version None)
Quarter: 2010Q3

REPORT INFORMATION
  Report Type: 
  Country: None (occurrence: None)
  Receive Date: 20100802
  Receipt Date: 20100721
  Transmission Date: 20110219
  Serious: Yes (Other)
  Sender: FDA-Public Use
  Company Number: FR-JNJFOC-20100707474

PATIENT
  Age: 47 Year
  Sex: Male

DRUGS (6)
  1. INFLIXIMAB, RECOMBINANT [Suspect]
     Indication: RHEUMATOID ARTHRITIS
     Dosage: 22 INFUSIONS OVER 36 MONTHS
     Route: 042
  2. INFLIXIMAB, RECOMBINANT [Suspect]
     Dosage: FOR 1 MONTH
     Route: 042
  3. ETANERCEPT [Concomitant]
     Dosage: FOR 42 MONTHS
  4. ADALIMUMAB [Concomitant]
     Dosage: FOR 6 MONTHS
  5. RITUXIMAB [Concomitant]
  6. ABATACEPT [Concomitant]

REACTIONS (4)
  - DEPRESSION [None]
  - DIPLOPIA [None]
  - PERICARDITIS [None]
  - WHIPPLE'S DISEASE [None]
